FAERS Safety Report 4950423-7 (Version None)
Quarter: 2006Q1

REPORT INFORMATION
  Report Type: 
  Country: None (occurrence: None)
  Receive Date: 20060322
  Receipt Date: 20060308
  Transmission Date: 20060701
  Serious: Yes (Hospitalization, Other)
  Sender: FDA-Public Use
  Company Number: BR-JNJFOC-20050703766

PATIENT
  Sex: Female
  Weight: 57 kg

DRUGS (16)
  1. LEVOFLOXACIN [Suspect]
     Indication: URINARY TRACT INFECTION
     Route: 042
     Dates: start: 20040929, end: 20041001
  2. LEVAQUIN [Suspect]
     Dates: start: 20041001, end: 20041006
  3. LEVONORGESTREL; ETHINYLESTRADIOL [Suspect]
     Route: 048
  4. LEVONORGESTREL; ETHINYLESTRADIOL [Suspect]
     Indication: CONTRACEPTION
     Route: 048
  5. DIPYRONE INJ [Concomitant]
     Route: 042
  6. DIPYRONE INJ [Concomitant]
     Route: 042
  7. DIPYRONE INJ [Concomitant]
     Indication: HEADACHE
     Route: 042
  8. DIPYRONE WITH CAFFEINE [Concomitant]
     Route: 048
  9. KETOPROFEN [Concomitant]
     Route: 042
  10. ACETAMINOPHEN [Concomitant]
     Route: 048
  11. PSYLLIUM PLANTAGO [Concomitant]
     Indication: CONSTIPATION
     Route: 048
  12. SODIUM CHLORIDE [Concomitant]
     Route: 042
  13. SODIUM CHLORIDE [Concomitant]
     Indication: HYPOTENSION
     Route: 042
  14. RED BLOOD CELLS [Concomitant]
     Route: 042
  15. OXYMETAZOLINE [Concomitant]
     Route: 045
  16. LACTATED RINGER'S [Concomitant]
     Indication: HYPOTENSION
     Route: 042

REACTIONS (7)
  - ABORTION INFECTED [None]
  - ABORTION SPONTANEOUS [None]
  - COUGH [None]
  - DRUG EXPOSURE DURING PREGNANCY [None]
  - HEADACHE [None]
  - HYPOTENSION [None]
  - PREGNANCY ON ORAL CONTRACEPTIVE [None]
